FAERS Safety Report 12837807 (Version 1)
Quarter: 2016Q4

REPORT INFORMATION
  Report Type: Spontaneous
  Country: IE (occurrence: IE)
  Receive Date: 20161012
  Receipt Date: 20161012
  Transmission Date: 20170207
  Serious: Yes (Other)
  Sender: FDA-Public Use
  Company Number: IE-009507513-1610IRL001299

PATIENT
  Sex: Male

DRUGS (5)
  1. CITALOPRAM [Concomitant]
     Active Substance: CITALOPRAM HYDROBROMIDE
  2. ZYVOX [Concomitant]
     Active Substance: LINEZOLID
  3. LERCANIDIPINE [Concomitant]
     Active Substance: LERCANIDIPINE
  4. LOSARTAN POTASSIUM MSD 12.5 MG FILM COATED TABLETS [Suspect]
     Active Substance: LOSARTAN POTASSIUM
     Route: 048
  5. FUROSEMIDE. [Suspect]
     Active Substance: FUROSEMIDE
     Route: 048

REACTIONS (1)
  - Sepsis [Unknown]
